FAERS Safety Report 15480335 (Version 2)
Quarter: 2018Q4

REPORT INFORMATION
  Report Type: Spontaneous
  Country: US (occurrence: US)
  Receive Date: 20181009
  Receipt Date: 20181214
  Transmission Date: 20190205
  Serious: No
  Sender: FDA-Public Use
  Company Number: US-BRISTOL-MYERS SQUIBB COMPANY-BMS-2018-090909

PATIENT
  Sex: Female

DRUGS (2)
  1. ORENCIA [Suspect]
     Active Substance: ABATACEPT
     Indication: PSORIATIC ARTHROPATHY
     Route: 065
  2. ORENCIA [Suspect]
     Active Substance: ABATACEPT
     Indication: OSTEOARTHRITIS
     Dosage: UNK
     Route: 065

REACTIONS (2)
  - Memory impairment [Unknown]
  - Adverse event [Unknown]
